FAERS Safety Report 5127140-6 (Version None)
Quarter: 2006Q4

REPORT INFORMATION
  Report Type: 
  Country: None (occurrence: None)
  Receive Date: 20061013
  Receipt Date: 20061003
  Transmission Date: 20070319
  Serious: Yes (Hospitalization)
  Sender: FDA-Public Use
  Company Number: 2006SE05284

PATIENT
  Age: 19747 Day
  Sex: Male
  Weight: 105 kg

DRUGS (2)
  1. BLOPRESS PLUS [Suspect]
     Indication: ESSENTIAL HYPERTENSION
     Dosage: CANDESARTAN CILEXETIL 16 MG; HCT 12.5 MG
     Route: 048
     Dates: start: 20060811, end: 20060913
  2. IBUPROFEN [Concomitant]
     Route: 048

REACTIONS (2)
  - APHASIA [None]
  - TRANSIENT ISCHAEMIC ATTACK [None]
